FAERS Safety Report 7274418-6 (Version None)
Quarter: 2011Q1

REPORT INFORMATION
  Report Type: 
  Country: None (occurrence: None)
  Receive Date: 20110201
  Receipt Date: 20110201
  Transmission Date: 20110831
  Serious: Yes (Other)
  Sender: FDA-Public Use
  Company Number: None

PATIENT
  Age: 30 Year
  Sex: Female
  Weight: 64.8644 kg

DRUGS (1)
  1. BOTOX [Suspect]
     Indication: MIGRAINE
     Dosage: 100 UNITS
     Dates: start: 20110107, end: 20110107

REACTIONS (7)
  - FATIGUE [None]
  - SINUSITIS [None]
  - HYPERHIDROSIS [None]
  - CHEST PAIN [None]
  - ASTHENIA [None]
  - MYALGIA [None]
  - UPPER RESPIRATORY TRACT INFECTION [None]
